FAERS Safety Report 21895195 (Version 1)
Quarter: 2023Q1

REPORT INFORMATION
  Report Type: Spontaneous
  Country: US (occurrence: US)
  Receive Date: 20230123
  Receipt Date: 20230123
  Transmission Date: 20230418
  Serious: Yes (Hospitalization)
  Sender: FDA-Public Use
  Company Number: US-drreddys-LIT/USA/23/0160243

PATIENT
  Age: 47 Year
  Sex: Male

DRUGS (4)
  1. GEMCITABINE [Suspect]
     Active Substance: GEMCITABINE
     Indication: Anaplastic large cell lymphoma T- and null-cell types recurrent
     Dosage: CUMULATIVE DOSE 6000 MG/M2
  2. BRENTUXIMAB VEDOTIN [Suspect]
     Active Substance: BRENTUXIMAB VEDOTIN
     Indication: Anaplastic large cell lymphoma T- and null-cell types recurrent
     Dosage: EIGHT CYCLES OF BV MONOTHERAPY
  3. BRENTUXIMAB VEDOTIN [Suspect]
     Active Substance: BRENTUXIMAB VEDOTIN
     Dosage: RE-TREATED WITH 13 CYCLES OF BV?CUMULATIVE BV DOSE 30.4 MG/KG
  4. CARMUSTINE [Suspect]
     Active Substance: CARMUSTINE
     Indication: Anaplastic large cell lymphoma T- and null-cell types recurrent
     Dosage: CUMULATIVE DOSE 525 MG/M2

REACTIONS (3)
  - Pulmonary toxicity [Unknown]
  - Pneumonitis [Unknown]
  - Product use in unapproved indication [Unknown]
